FAERS Safety Report 6895084-5 (Version None)
Quarter: 2010Q3

REPORT INFORMATION
  Report Type: 
  Country: None (occurrence: None)
  Receive Date: 20100730
  Receipt Date: 20100730
  Transmission Date: 20110219
  Serious: Yes (Hospitalization)
  Sender: FDA-Public Use
  Company Number: None

PATIENT
  Age: 64 Year
  Sex: Male
  Weight: 63.4 kg

DRUGS (1)
  1. VANCOMYCIN [Suspect]
     Indication: INFECTION
     Dosage: 1250 MG BID IV
     Route: 042
     Dates: start: 20100702, end: 20100707

REACTIONS (4)
  - HYPOPHAGIA [None]
  - HYPOVOLAEMIA [None]
  - RENAL FAILURE ACUTE [None]
  - VOMITING [None]
